FAERS Safety Report 18252923 (Version 1)
Quarter: 2020Q3

REPORT INFORMATION
  Report Type: Spontaneous
  Country: US (occurrence: US)
  Receive Date: 20200910
  Receipt Date: 20200910
  Transmission Date: 20201103
  Serious: Yes (Life-Threatening, Hospitalization)
  Sender: FDA-Public Use
  Company Number: None

PATIENT
  Age: 54 Year
  Sex: Male
  Weight: 76.1 kg

DRUGS (1)
  1. BEVACIZUMAB?AWWB (MVASI) [Suspect]
     Active Substance: BEVACIZUMAB-AWWB
     Indication: RECTAL PERFORATION
     Dosage: ?          OTHER FREQUENCY:EVERY 2 WEEKS;?
     Route: 042
     Dates: start: 20200129, end: 20200506

REACTIONS (1)
  - Rectal perforation [None]

NARRATIVE: CASE EVENT DATE: 20200509
